FAERS Safety Report 7426666-X (Version None)
Quarter: 2011Q2

REPORT INFORMATION
  Report Type: 
  Country: None (occurrence: None)
  Receive Date: 20110420
  Receipt Date: 20110101
  Transmission Date: 20111010
  Serious: No
  Sender: FDA-Public Use
  Company Number: US-TEVA-262226USA

PATIENT
  Sex: Female
  Weight: 70.37 kg

DRUGS (6)
  1. PLAN B ONE-STEP [Suspect]
     Indication: POST COITAL CONTRACEPTION
     Dosage: 1.5 MILLIGRAM;
     Route: 048
     Dates: start: 20101208, end: 20101208
  2. PLAN B ONE-STEP [Suspect]
     Dosage: 1.5 MILLIGRAM;
     Route: 048
     Dates: start: 20110101, end: 20110101
  3. CLONAZEPAM [Concomitant]
     Indication: BIPOLAR DISORDER
     Dosage: 3 MILLIGRAM;
     Route: 048
     Dates: start: 20101001
  4. TRILEPTAL [Concomitant]
     Indication: BIPOLAR DISORDER
     Dosage: 1800 MILLIGRAM; 1 TABLET IN AM AND 2 TABLETS IN PM
     Route: 048
  5. XANAX [Concomitant]
     Indication: ANXIETY
     Route: 048
     Dates: start: 20030101
  6. TOPAMAX [Concomitant]
     Indication: BIPOLAR DISORDER
     Dosage: 50 MILLIGRAM;
     Route: 048
     Dates: start: 20101001

REACTIONS (1)
  - MENSTRUATION DELAYED [None]
